FAERS Safety Report 11767611 (Version 1)
Quarter: 2015Q4

REPORT INFORMATION
  Report Type: Spontaneous
  Country: US (occurrence: None)
  Receive Date: 20151120
  Receipt Date: 20151120
  Transmission Date: 20160304
  Serious: Yes (Life-Threatening, Hospitalization, Other)
  Sender: FDA-Public Use
  Company Number: None

PATIENT
  Age: 30 Year
  Sex: Female

DRUGS (2)
  1. ZOLOFT NATLREXONE [Concomitant]
  2. NALTREXONE HCL [Suspect]
     Active Substance: NALTREXONE HYDROCHLORIDE
     Indication: TRICHOTILLOMANIA
     Route: 048
     Dates: start: 20150826, end: 20151119

REACTIONS (9)
  - Dehydration [None]
  - Multi-organ disorder [None]
  - Drug dependence [None]
  - Therapy cessation [None]
  - Psychotic disorder [None]
  - Metabolic disorder [None]
  - Tremor [None]
  - Insomnia [None]
  - Renal impairment [None]

NARRATIVE: CASE EVENT DATE: 20150826
